FAERS Safety Report 8383406-8 (Version None)
Quarter: 2012Q2

REPORT INFORMATION
  Report Type: 
  Country: None (occurrence: None)
  Receive Date: 20120524
  Receipt Date: 20120521
  Transmission Date: 20120825
  Serious: Yes (Death, Other)
  Sender: FDA-Public Use
  Company Number: US-PFIZER INC-2012007253

PATIENT
  Sex: Male

DRUGS (6)
  1. HYDROCHLOROTHIAZIDE [Concomitant]
     Dosage: UNK
  2. ALBUTEROL [Concomitant]
     Dosage: UNK
  3. REVATIO [Suspect]
     Dosage: 20 MG, 3X/DAY
     Dates: start: 20090831
  4. SYMBICORT [Concomitant]
     Dosage: UNK
  5. REVATIO [Suspect]
     Dosage: 20 MG, 3X/DAY
     Route: 048
     Dates: start: 20090323
  6. WARFARIN [Concomitant]
     Dosage: UNK

REACTIONS (2)
  - RECTAL CANCER [None]
  - LUNG NEOPLASM MALIGNANT [None]
